FAERS Safety Report 7811388-3 (Version None)
Quarter: 2011Q4

REPORT INFORMATION
  Report Type: 
  Country: None (occurrence: None)
  Receive Date: 20111013
  Receipt Date: 20111007
  Transmission Date: 20120403
  Serious: Yes (Hospitalization, Other)
  Sender: FDA-Public Use
  Company Number: FR-PFIZER INC-2011233788

PATIENT
  Age: 28 Year
  Sex: Male

DRUGS (2)
  1. VARENICLINE TARTRATE [Suspect]
     Indication: SMOKING CESSATION THERAPY
     Dosage: 0.5 MG, 1X/DAY
     Route: 048
     Dates: start: 20110913
  2. TRILEPTAL [Concomitant]
     Indication: EPILEPSY
     Dosage: 600 MG, 2X/DAY
     Route: 048

REACTIONS (5)
  - STRESS [None]
  - LOSS OF CONSCIOUSNESS [None]
  - PETIT MAL EPILEPSY [None]
  - CONVULSION [None]
  - INSOMNIA [None]
